FAERS Safety Report 19957993 (Version 1)
Quarter: 2021Q4

REPORT INFORMATION
  Report Type: Spontaneous
  Country: US (occurrence: US)
  Receive Date: 20211015
  Receipt Date: 20211015
  Transmission Date: 20220304
  Serious: No
  Sender: FDA-Public Use
  Company Number: US-ALNYLAM PHARMACEUTICALS, INC.-ALN-2021-002543

PATIENT

DRUGS (1)
  1. GIVLAARI [Suspect]
     Active Substance: GIVOSIRAN SODIUM
     Indication: Porphyria
     Dosage: UNK, MONTHLY
     Route: 058
     Dates: start: 202002

REACTIONS (2)
  - Pain [Recovering/Resolving]
  - Fatigue [Recovering/Resolving]
